FAERS Safety Report 9379883 (Version 1)
Quarter: 2013Q3

REPORT INFORMATION
  Report Type: Spontaneous
  Country: ES (occurrence: ES)
  Receive Date: 20130702
  Receipt Date: 20130702
  Transmission Date: 20140515
  Serious: Yes (Other)
  Sender: FDA-Public Use
  Company Number: ES-ELI_LILLY_AND_COMPANY-ES201306006667

PATIENT
  Age: 71 Year
  Sex: Female

DRUGS (1)
  1. FORSTEO [Suspect]
     Dosage: 20 UG, UNK
     Dates: end: 201206

REACTIONS (7)
  - General physical condition abnormal [Unknown]
  - Vomiting [Unknown]
  - Hot flush [Unknown]
  - Arthralgia [Unknown]
  - Dizziness [Unknown]
  - Gait disturbance [Not Recovered/Not Resolved]
  - Back disorder [Not Recovered/Not Resolved]
